FAERS Safety Report 5817041-X (Version None)
Quarter: 2008Q3

REPORT INFORMATION
  Report Type: 
  Country: None (occurrence: None)
  Receive Date: 20080717
  Receipt Date: 20080707
  Transmission Date: 20090109
  Serious: Yes (Other)
  Sender: FDA-Public Use
  Company Number: 2008BI010396

PATIENT
  Age: 64 Year
  Sex: Female
  Weight: 62.1428 kg

DRUGS (3)
  1. AVONEX [Suspect]
     Indication: MULTIPLE SCLEROSIS
     Dosage: 30 UG; QW; IM,30 UG; QW; IM, 30 UG; QW; IM
     Route: 030
     Dates: start: 20030101, end: 20070101
  2. AVONEX [Suspect]
     Indication: MULTIPLE SCLEROSIS
     Dosage: 30 UG; QW; IM,30 UG; QW; IM, 30 UG; QW; IM
     Route: 030
     Dates: start: 19990101
  3. AVONEX [Suspect]
     Indication: MULTIPLE SCLEROSIS
     Dosage: 30 UG; QW; IM,30 UG; QW; IM, 30 UG; QW; IM
     Route: 030
     Dates: start: 20080401

REACTIONS (3)
  - BREAST CANCER FEMALE [None]
  - OESTROGEN RECEPTOR ASSAY POSITIVE [None]
  - PROGESTERONE RECEPTOR ASSAY POSITIVE [None]
